FAERS Safety Report 8815535 (Version 2)
Quarter: 2012Q4

REPORT INFORMATION
  Report Type: 
  Country: TR (occurrence: TR)
  Receive Date: 20120928
  Receipt Date: 20120928
  Transmission Date: 20130627
  Serious: Yes (Other)
  Sender: FDA-Public Use
  Company Number: TR-JNJFOC-20120711468

PATIENT
  Age: 29 Year
  Sex: Female
  Weight: 53 kg

DRUGS (3)
  1. INFLIXIMAB, RECOMBINANT [Suspect]
     Indication: PYODERMA GANGRENOSUM
     Dosage: from 7 years from the time of the report
     Route: 042
     Dates: start: 20050805, end: 20120518
  2. INFLIXIMAB, RECOMBINANT [Suspect]
     Indication: COLITIS ULCERATIVE
     Dosage: from 7 years from the time of the report
     Route: 042
     Dates: start: 20050805, end: 20120518
  3. MESALAMINE [Concomitant]
     Dosage: 3g/mg
     Route: 065
     Dates: start: 1996

REACTIONS (1)
  - Peritoneal tuberculosis [Recovering/Resolving]
